FAERS Safety Report 20877349 (Version 1)
Quarter: 2022Q2

REPORT INFORMATION
  Report Type: Spontaneous
  Country: US (occurrence: None)
  Receive Date: 20220526
  Receipt Date: 20220526
  Transmission Date: 20220720
  Serious: Yes (Life-Threatening, Hospitalization, Other)
  Sender: FDA-Public Use
  Company Number: None

PATIENT
  Age: 63 Year
  Sex: Male

DRUGS (1)
  1. NIVOLUMAB [Suspect]
     Active Substance: NIVOLUMAB
     Route: 042
     Dates: start: 20211022, end: 20220505

REACTIONS (19)
  - Haematuria [None]
  - Perineal pain [None]
  - Protein urine present [None]
  - Pneumoperitoneum [None]
  - Abdominal distension [None]
  - International normalised ratio decreased [None]
  - Metastases to liver [None]
  - Adrenal gland cancer metastatic [None]
  - Metastases to lymph nodes [None]
  - Metastases to bone [None]
  - Pain [None]
  - Scrotal pain [None]
  - Mesenteric neoplasm [None]
  - Hyponatraemia [None]
  - Hypovolaemia [None]
  - Hypertension [None]
  - Colonic abscess [None]
  - Renal cell carcinoma [None]
  - Intestinal perforation [None]

NARRATIVE: CASE EVENT DATE: 20220506
